FAERS Safety Report 24661984 (Version 1)
Quarter: 2024Q4

REPORT INFORMATION
  Report Type: Spontaneous
  Country: US (occurrence: US)
  Receive Date: 20241125
  Receipt Date: 20241125
  Transmission Date: 20250115
  Serious: Yes (Hospitalization, Other)
  Sender: MERCK
  Company Number: US-009507513-2411USA009187

PATIENT
  Age: 5 Decade
  Sex: Male

DRUGS (7)
  1. TEMODAR [Suspect]
     Active Substance: TEMOZOLOMIDE
     Indication: Glioblastoma
     Dosage: DAILY
  2. LEVETIRACETAM [Suspect]
     Active Substance: LEVETIRACETAM
     Indication: Glioblastoma
  3. LACOSAMIDE [Concomitant]
     Active Substance: LACOSAMIDE
  4. DEXAMETHASONE [Concomitant]
     Active Substance: DEXAMETHASONE
  5. PANTOPRAZOLE [Concomitant]
     Active Substance: PANTOPRAZOLE
  6. CLONAZEPAM [Concomitant]
     Active Substance: CLONAZEPAM
  7. ACETAMINOPHEN [Concomitant]
     Active Substance: ACETAMINOPHEN
     Indication: Headache
     Dosage: OCASIONAL

REACTIONS (4)
  - Drug-induced liver injury [Not Recovered/Not Resolved]
  - Cholestatic liver injury [Not Recovered/Not Resolved]
  - Vanishing bile duct syndrome [Not Recovered/Not Resolved]
  - Off label use [Unknown]
